FAERS Safety Report 24651381 (Version 1)
Quarter: 2024Q4

REPORT INFORMATION
  Report Type: Spontaneous
  Country: US (occurrence: US)
  Receive Date: 20241122
  Receipt Date: 20241122
  Transmission Date: 20250115
  Serious: No
  Sender: ALVOGEN
  Company Number: US-ALVOGEN-2023092659

PATIENT
  Sex: Female

DRUGS (2)
  1. TERIPARATIDE [Suspect]
     Active Substance: TERIPARATIDE
     Indication: Supplementation therapy
     Dosage: STARTED FOR THE VERY FIRST TIME IN AUG OR SEPTEMBER (DID NOT REMEMBER THE EXACT MONTH)
     Dates: start: 2023
  2. TERIPARATIDE [Suspect]
     Active Substance: TERIPARATIDE
     Indication: Supplementation therapy
     Dosage: EXPIRATION DATE: UU-OCT-2024?GOT IT RECENTLY AND IT MUST SAY 22-NOV-2023 20 MCG
     Dates: start: 202311

REACTIONS (5)
  - Device malfunction [Unknown]
  - Device operational issue [Unknown]
  - Product use issue [Unknown]
  - Product dose omission issue [Unknown]
  - Off label use [Unknown]

NARRATIVE: CASE EVENT DATE: 20231125
